FAERS Safety Report 9705731 (Version 2)
Quarter: 2015Q3

REPORT INFORMATION
  Report Type: Spontaneous
  Country: US (occurrence: US)
  Receive Date: 20131122
  Receipt Date: 20150803
  Transmission Date: 20151125
  Serious: No
  Sender: FDA-Public Use
  Company Number: US-GILEAD-2008-0017820

PATIENT
  Age: 57 Year
  Sex: Female
  Weight: 61.23 kg

DRUGS (7)
  1. DIOVAN [Concomitant]
     Active Substance: VALSARTAN
  2. ASPIRIN. [Concomitant]
     Active Substance: ASPIRIN
     Dates: end: 20080811
  3. OMEPRAZOLE. [Concomitant]
     Active Substance: OMEPRAZOLE
  4. ALLOPURINOL. [Concomitant]
     Active Substance: ALLOPURINOL
  5. ASA FREE CHEWABLE [Concomitant]
  6. CHOLESTYRAM POWDER [Concomitant]
  7. LETAIRIS [Suspect]
     Active Substance: AMBRISENTAN
     Indication: PULMONARY ARTERIAL HYPERTENSION
     Route: 048
     Dates: start: 20080814

REACTIONS (6)
  - Oedema peripheral [None]
  - Epistaxis [None]
  - Headache [None]
  - Gingival bleeding [None]
  - Feeling drunk [None]
  - Ocular icterus [None]

NARRATIVE: CASE EVENT DATE: 20080815
